FAERS Safety Report 11481633 (Version 1)
Quarter: 2015Q3

REPORT INFORMATION
  Report Type: Spontaneous
  Country: PR (occurrence: PR)
  Receive Date: 20150909
  Receipt Date: 20150909
  Transmission Date: 20151125
  Serious: No
  Sender: FDA-Public Use
  Company Number: PR-BAXTER-2015BAX048815

PATIENT
  Sex: Female
  Weight: 2.8 kg

DRUGS (9)
  1. 70% DEXTROSE INJECTION USP [Suspect]
     Active Substance: DEXTROSE
     Indication: PARENTERAL NUTRITION
     Route: 042
     Dates: start: 20150828, end: 20150828
  2. POTASSIUM CHLORIDE 0.4MEQ/ML [Suspect]
     Active Substance: POTASSIUM CHLORIDE
     Indication: PARENTERAL NUTRITION
     Route: 042
     Dates: start: 20150828, end: 20150828
  3. PEDIATRIC INFUVITE MULTIPLE VITAMINS [Suspect]
     Active Substance: ALPHA-TOCOPHEROL ACETATE\ASCORBIC ACID\BIOTIN\CHOLECALCIFEROL\CYANOCOBALAMIN\DEXPANTHENOL\FOLIC ACID\NIACINAMIDE\PHYTONADIONE\PYRIDOXINE HYDROCHLORIDE\RIBOFLAVIN 5^-PHOSPHATE SODIUM\THIAMINE HYDROCHLORIDE\VITAMIN A PALMITATE
     Indication: PARENTERAL NUTRITION
     Route: 042
     Dates: start: 20150828, end: 20150828
  4. MULTITRACE -4 PEDIATRIC [Suspect]
     Active Substance: CHROMIC CHLORIDE\CUPRIC SULFATE\MANGANESE SULFATE\ZINC SULFATE HEPTAHYDRATE
     Indication: PARENTERAL NUTRITION
     Route: 042
     Dates: start: 20150828, end: 20150828
  5. SODIUM PHOSPHATE [Suspect]
     Active Substance: SODIUM PHOSPHATE
     Indication: PARENTERAL NUTRITION
     Route: 042
     Dates: start: 20150828, end: 20150828
  6. STERILE WATER [Suspect]
     Active Substance: WATER
     Indication: PARENTERAL NUTRITION
     Route: 042
     Dates: start: 20150828, end: 20150828
  7. HEPATAMINE [Suspect]
     Active Substance: ALANINE\ARGININE\CYSTEINE\GLYCINE\HISTIDINE\ISOLEUCINE\LEUCINE\LYSINE\METHIONINE\PHENYLALANINE\PROLINE\SERINE\THREONINE\TRYPTOPHAN\VALINE
     Indication: PARENTERAL NUTRITION
     Route: 042
     Dates: start: 20150828, end: 20150828
  8. 5% SODIUM CHLORIDE INJECTION [Suspect]
     Active Substance: SODIUM CHLORIDE
     Indication: PARENTERAL NUTRITION
     Route: 042
     Dates: start: 20150828, end: 20150828
  9. MG SULFATE [Suspect]
     Active Substance: MAGNESIUM SULFATE
     Indication: PARENTERAL NUTRITION
     Route: 042
     Dates: start: 20150828, end: 20150828

REACTIONS (2)
  - No adverse event [Recovered/Resolved]
  - Product selection error [Recovered/Resolved]

NARRATIVE: CASE EVENT DATE: 20150828
